FAERS Safety Report 4327299-4 (Version None)
Quarter: 2004Q1

REPORT INFORMATION
  Report Type: 
  Country: None (occurrence: None)
  Receive Date: 20040325
  Receipt Date: 20040126
  Transmission Date: 20041129
  Serious: No
  Sender: FDA-Public Use
  Company Number: PHEH2004US01199

PATIENT
  Age: 5 Year
  Sex: Male

DRUGS (4)
  1. TRILEPTAL [Suspect]
     Indication: ATTENTION DEFICIT/HYPERACTIVITY DISORDER
     Dosage: SEE IMAGE
     Route: 048
     Dates: start: 20040114, end: 20040120
  2. TRILEPTAL [Suspect]
     Indication: ATTENTION DEFICIT/HYPERACTIVITY DISORDER
     Dosage: SEE IMAGE
     Route: 048
     Dates: start: 20040121, end: 20040123
  3. TRILEPTAL [Suspect]
     Indication: ATTENTION DEFICIT/HYPERACTIVITY DISORDER
     Dosage: SEE IMAGE
     Route: 048
     Dates: start: 20040125, end: 20040125
  4. TRILEPTAL [Suspect]
     Indication: ATTENTION DEFICIT/HYPERACTIVITY DISORDER
     Dosage: SEE IMAGE
     Route: 048
     Dates: start: 20040126

REACTIONS (7)
  - ACCIDENTAL OVERDOSE [None]
  - DIZZINESS [None]
  - DYSSTASIA [None]
  - EYE MOVEMENT DISORDER [None]
  - MEDICATION ERROR [None]
  - SOMNOLENCE [None]
  - VOMITING [None]
